FAERS Safety Report 7269622-7 (Version None)
Quarter: 2011Q1

REPORT INFORMATION
  Report Type: 
  Country: None (occurrence: None)
  Receive Date: 20110202
  Receipt Date: 20110119
  Transmission Date: 20110831
  Serious: Yes (Death, Hospitalization, Other)
  Sender: FDA-Public Use
  Company Number: US-CELGENEUS-163-21880-10091882

PATIENT
  Sex: Male

DRUGS (13)
  1. QUINAPRIL [Concomitant]
     Route: 048
  2. LORTAB [Concomitant]
     Indication: PAIN
     Dosage: 7.5/500MG
     Route: 065
  3. ASPIRIN [Concomitant]
     Route: 065
  4. REVLIMID [Suspect]
     Route: 048
     Dates: start: 20100910
  5. DEXAMETHASONE [Concomitant]
     Route: 048
  6. VERAPAMIL [Concomitant]
     Route: 048
  7. BUMEX [Concomitant]
     Route: 065
  8. HEPARIN SODIUM [Concomitant]
     Dosage: 100 UNIT/ML
     Route: 051
     Dates: start: 20101123
  9. SIMVASTATIN [Concomitant]
     Route: 048
  10. DEXAMETHASONE [Concomitant]
     Route: 065
  11. LEVOTHYROXINE [Concomitant]
     Route: 065
  12. REVLIMID [Suspect]
     Indication: MULTIPLE MYELOMA
     Route: 048
     Dates: start: 20091106
  13. SODIUM CHLORIDE INJ [Concomitant]
     Route: 050
     Dates: start: 20101123

REACTIONS (3)
  - RENAL AMYLOIDOSIS [None]
  - THROMBOTIC THROMBOCYTOPENIC PURPURA [None]
  - CONVULSION [None]
